FAERS Safety Report 9011284 (Version 1)
Quarter: 2013Q1

REPORT INFORMATION
  Report Type: Spontaneous
  Country: US (occurrence: US)
  Receive Date: 20130109
  Receipt Date: 20130109
  Transmission Date: 20140127
  Serious: Yes (Other)
  Sender: FDA-Public Use
  Company Number: US-009507513-1004USA01620

PATIENT
  Age: 7 Year
  Sex: Male
  Weight: 43.91 kg

DRUGS (2)
  1. SINGULAIR [Suspect]
     Indication: ASTHMA
     Dosage: 1 DF, QD
     Route: 048
     Dates: start: 20080501, end: 20081010
  2. SINGULAIR [Suspect]
     Indication: HYPERSENSITIVITY
     Dosage: 1 DF, PRN
     Route: 048
     Dates: start: 20090531, end: 20090630

REACTIONS (5)
  - Depression [Unknown]
  - Educational problem [Unknown]
  - Fatigue [Unknown]
  - Mood swings [Unknown]
  - Somnolence [Unknown]
